FAERS Safety Report 5357715-0 (Version None)
Quarter: 2007Q2

REPORT INFORMATION
  Report Type: 
  Country: None (occurrence: None)
  Receive Date: 20070614
  Receipt Date: 20070611
  Transmission Date: 20071010
  Serious: Yes (Other)
  Sender: FDA-Public Use
  Company Number: US-PFIZER INC-2007047686

PATIENT
  Sex: Female
  Weight: 78.5 kg

DRUGS (7)
  1. DETROL LA [Suspect]
     Indication: HYPERTONIC BLADDER
  2. AMBIEN [Concomitant]
  3. ALL OTHER THERAPEUTIC PRODUCTS [Concomitant]
  4. LEXAPRO [Concomitant]
  5. PREMARIN [Concomitant]
  6. ACIPHEX [Concomitant]
  7. VITAMIN CAP [Concomitant]

REACTIONS (2)
  - FALL [None]
  - LOSS OF CONSCIOUSNESS [None]
